FAERS Safety Report 8131981-0 (Version None)
Quarter: 2012Q1

REPORT INFORMATION
  Report Type: 
  Country: None (occurrence: None)
  Receive Date: 20120207
  Receipt Date: 20120123
  Transmission Date: 20120608
  Serious: Yes (Death, Other)
  Sender: FDA-Public Use
  Company Number: 2012SGN00016

PATIENT
  Age: 30 Year
  Sex: Female

DRUGS (1)
  1. ADCETRIS [Suspect]
     Indication: HODGKIN'S DISEASE
     Dosage: 1.8 MG/KG, Q21D
     Dates: start: 20111001, end: 20111129

REACTIONS (3)
  - PULMONARY ALVEOLAR HAEMORRHAGE [None]
  - RESPIRATORY DISTRESS [None]
  - PULMONARY TOXICITY [None]
